FAERS Safety Report 16000279 (Version 2)
Quarter: 2019Q1

REPORT INFORMATION
  Report Type: Report from Study
  Country: US (occurrence: US)
  Receive Date: 20190225
  Receipt Date: 20190228
  Transmission Date: 20190418
  Serious: Yes (Hospitalization)
  Sender: FDA-Public Use
  Company Number: US-GILEAD-2019-0392390

PATIENT
  Age: 56 Year
  Sex: Male

DRUGS (26)
  1. COLISTIMETHATE [COLISTIMETHATE SODIUM] [Concomitant]
  2. CRESTOR [Concomitant]
     Active Substance: ROSUVASTATIN CALCIUM
  3. LANTUS [Concomitant]
     Active Substance: INSULIN GLARGINE
  4. MYCOPHENOLATE [Concomitant]
     Active Substance: MYCOPHENOLIC ACID
  5. VITAMIN B12 [Concomitant]
     Active Substance: CYANOCOBALAMIN
  6. CLONIDINE. [Concomitant]
     Active Substance: CLONIDINE
  7. PROAIR [FLUTICASONE PROPIONATE] [Concomitant]
  8. CARVEDILOL. [Concomitant]
     Active Substance: CARVEDILOL
  9. LOVAZA [Concomitant]
     Active Substance: OMEGA-3-ACID ETHYL ESTERS
  10. NOVOLOG [Concomitant]
     Active Substance: INSULIN ASPART
  11. NOXAFIL [Concomitant]
     Active Substance: POSACONAZOLE
  12. ZENPEP [Concomitant]
     Active Substance: PANCRELIPASE AMYLASE\PANCRELIPASE LIPASE\PANCRELIPASE PROTEASE
  13. PREDNISONE. [Concomitant]
     Active Substance: PREDNISONE
  14. VALCYTE [Concomitant]
     Active Substance: VALGANCICLOVIR HYDROCHLORIDE
  15. MELATONIN [Concomitant]
     Active Substance: MELATONIN
  16. AZTREONAM LYSINE [Suspect]
     Active Substance: AZTREONAM LYSINE
     Indication: CYSTIC FIBROSIS
     Dosage: 75 MG, TID
     Route: 065
     Dates: start: 20180515
  17. AZITHROMYCIN ANHYDROUS. [Concomitant]
     Active Substance: AZITHROMYCIN ANHYDROUS
  18. BIOTIN [Concomitant]
     Active Substance: BIOTIN
  19. CALCIUM [Concomitant]
     Active Substance: CALCIUM
  20. DOCUSATE [Concomitant]
     Active Substance: DOCUSATE
  21. OMEPRAZOLE. [Concomitant]
     Active Substance: OMEPRAZOLE
  22. STERILE WATER [Concomitant]
     Active Substance: WATER
  23. BACTRIM [Concomitant]
     Active Substance: SULFAMETHOXAZOLE\TRIMETHOPRIM
  24. KALYDECO [Concomitant]
     Active Substance: IVACAFTOR
  25. MAG OXIDE [Concomitant]
     Active Substance: MAGNESIUM OXIDE
  26. VITAMIN D [Concomitant]
     Active Substance: CHOLECALCIFEROL

REACTIONS (2)
  - Influenza [Unknown]
  - Influenza [Unknown]

NARRATIVE: CASE EVENT DATE: 20190203
